FAERS Safety Report 10258382 (Version 1)
Quarter: 2014Q2

REPORT INFORMATION
  Report Type: Spontaneous
  Country: US (occurrence: US)
  Receive Date: 20140625
  Receipt Date: 20140625
  Transmission Date: 20141212
  Serious: Yes (Life-Threatening, Hospitalization)
  Sender: FDA-Public Use
  Company Number: US-BANPHARM-20142798

PATIENT
  Age: 15 Year
  Sex: Male
  Weight: 56.7 kg

DRUGS (2)
  1. NAPROXEN UNKNOWN PRODUCT [Suspect]
     Indication: SUICIDAL BEHAVIOUR
     Dosage: 150 DF,
     Route: 048
  2. IBUPROFEN UNKNOWN PRODUCT [Suspect]
     Indication: SUICIDAL BEHAVIOUR
     Dosage: 50 DF,
     Route: 048

REACTIONS (4)
  - Adrenal insufficiency [Recovered/Resolved]
  - Metabolic acidosis [Recovered/Resolved]
  - Hypotension [Recovered/Resolved]
  - Suicidal behaviour [Recovered/Resolved]
